FAERS Safety Report 21962396 (Version 1)
Quarter: 2023Q1

REPORT INFORMATION
  Report Type: Report from Study
  Country: US (occurrence: US)
  Receive Date: 20230207
  Receipt Date: 20230207
  Transmission Date: 20230418
  Serious: No
  Sender: FDA-Public Use
  Company Number: US-ORG100014127-2022000937

PATIENT
  Age: 60 Year
  Sex: Female

DRUGS (11)
  1. LYSODREN [Suspect]
     Active Substance: MITOTANE
     Indication: Adrenal gland cancer
     Dosage: 5 TABLETS EVERY MORNING AND 6 TABLETS EVERY EVENING
     Route: 048
     Dates: start: 20220102
  2. LYSODREN [Suspect]
     Active Substance: MITOTANE
     Indication: Adrenal gland cancer
     Dosage: 4 TABLETS TWICE DAILY
     Route: 048
     Dates: start: 2022
  3. ALLEGRA ALRG TAB 180MG [Concomitant]
     Indication: Product used for unknown indication
  4. AMLODIPINE [Concomitant]
     Active Substance: AMLODIPINE BESYLATE
     Indication: Product used for unknown indication
  5. ASPIRIN LOW TAB 81MG EC [Concomitant]
     Indication: Product used for unknown indication
  6. ATORVASTATIN TAB 80MG; [Concomitant]
     Indication: Product used for unknown indication
  7. CORTISONE CRE 1 PERCENT [Concomitant]
     Indication: Product used for unknown indication
  8. TYLENOL TAB 500MG [Concomitant]
     Indication: Product used for unknown indication
  9. VITAMIN C TAB 250MG [Concomitant]
     Indication: Product used for unknown indication
  10. VITAMIN D CAP 50000UNT [Concomitant]
     Indication: Product used for unknown indication
  11. ZINC TAB 50MG [Concomitant]
     Indication: Product used for unknown indication

REACTIONS (3)
  - Urinary tract infection [Recovered/Resolved]
  - Balance disorder [Not Recovered/Not Resolved]
  - Diarrhoea [Not Recovered/Not Resolved]

NARRATIVE: CASE EVENT DATE: 20220101
